FAERS Safety Report 16158784 (Version 1)
Quarter: 2019Q2

REPORT INFORMATION
  Report Type: Spontaneous
  Country: US (occurrence: US)
  Receive Date: 20190404
  Receipt Date: 20190404
  Transmission Date: 20190711
  Serious: No
  Sender: FDA-Public Use
  Company Number: US-LOREAL USA PRODUCTS, INC.-2018LOR00004

PATIENT
  Sex: Female

DRUGS (1)
  1. ANTHELIOS 40 [Suspect]
     Active Substance: AVOBENZONE\ECAMSULE\OCTOCRYLENE
     Dosage: UNK
     Dates: start: 201805

REACTIONS (4)
  - Upper limb fracture [Not Recovered/Not Resolved]
  - Expired product administered [Unknown]
  - Application site pain [Unknown]
  - Fatigue [Not Recovered/Not Resolved]

NARRATIVE: CASE EVENT DATE: 201805
